FAERS Safety Report 9551581 (Version 1)
Quarter: 2013Q3

REPORT INFORMATION
  Report Type: Spontaneous
  Country: US (occurrence: None)
  Receive Date: 20130724
  Receipt Date: 20130724
  Transmission Date: 20140515
  Serious: Yes (Other)
  Sender: FDA-Public Use
  Company Number: PHEH2013US005854

PATIENT
  Sex: Female

DRUGS (15)
  1. GLEEVEC (IMATINIB) [Suspect]
     Indication: CHRONIC MYELOID LEUKAEMIA
     Route: 048
  2. DUONEB (IRPATROPIUM) [Concomitant]
  3. L THYROXIN (LEVOTHRYOXINE SODIUM) [Concomitant]
  4. SIMVASTATINE (SIMVASTIN) [Concomitant]
  5. LASIX (FUROSEMIDE) [Concomitant]
  6. KLOR--CON M10 (POTASSIUM CHLORIDE) [Concomitant]
  7. ZYRTEC (CETIRIXINE HYDROCHLORIDE) [Concomitant]
  8. PEPCID (FAMOTIDINE) [Concomitant]
  9. MULTIVITAMINS (ASORBIC ACID, ERGOCALCIFEROL, FOLIC ACID, NICOTINAMIDE, PANTHENOL, RETINOL, RIBOFLAVIN, THIAMINE HYDROCHLORIDE) [Concomitant]
  10. CALCIUM CITRATE + D (CALCIUM CITRATE, COLECALCIFEROL) [Concomitant]
  11. OMEGA 3 (FISH OIL) [Concomitant]
  12. AMBIEN (ZOLPIDEM TARTRATE) [Concomitant]
  13. L-LYSINE (LYSINE) [Concomitant]
  14. NASAL SALINE (SODIUM CHLORIDE) [Concomitant]
  15. IRON (IRON) [Concomitant]

REACTIONS (2)
  - Weight decreased [None]
  - Diarrhoea [None]
